FAERS Safety Report 17361898 (Version 1)
Quarter: 2020Q1

REPORT INFORMATION
  Report Type: Spontaneous
  Country: SK (occurrence: SK)
  Receive Date: 20200203
  Receipt Date: 20200203
  Transmission Date: 20200409
  Serious: Yes (Other)
  Sender: FDA-Public Use
  Company Number: SK-MYLANLABS-2019M1124578

PATIENT
  Age: 38 Year
  Sex: Female
  Weight: 75 kg

DRUGS (6)
  1. LEPONEX [Suspect]
     Active Substance: CLOZAPINE
     Indication: SCHIZOAFFECTIVE DISORDER
     Dosage: 50 MILLIGRAM
     Route: 048
  2. LEPONEX [Suspect]
     Active Substance: CLOZAPINE
     Dosage: 25 MILLIGRAM, TID
     Dates: start: 202001
  3. ZINNAT                             /00454602/ [Concomitant]
     Active Substance: CEFUROXIME SODIUM
     Dosage: UNK
     Dates: end: 20200123
  4. QUETIAPIN [Concomitant]
     Active Substance: QUETIAPINE
  5. LEPONEX [Suspect]
     Active Substance: CLOZAPINE
     Dosage: 25 MILLIGRAM, BID
     Dates: start: 202001
  6. LEPONEX [Suspect]
     Active Substance: CLOZAPINE
     Dosage: 100 MILLIGRAM, PM
     Dates: start: 20200124

REACTIONS (4)
  - Agitation [Unknown]
  - Insomnia [Unknown]
  - Foetal cardiac disorder [Unknown]
  - Maternal exposure during pregnancy [Unknown]

NARRATIVE: CASE EVENT DATE: 202001
